FAERS Safety Report 9526205 (Version 1)
Quarter: 2013Q3

REPORT INFORMATION
  Report Type: Spontaneous
  Country: FR (occurrence: FR)
  Receive Date: 20130916
  Receipt Date: 20130916
  Transmission Date: 20140515
  Serious: Yes (Other)
  Sender: FDA-Public Use
  Company Number: FR-PFIZER INC-2013261811

PATIENT
  Age: 45 Year
  Sex: Male

DRUGS (6)
  1. TYGACIL [Suspect]
     Indication: PYREXIA
     Dosage: 100 MG, DAILY
     Dates: start: 20090524, end: 20130525
  2. TYGACIL [Suspect]
     Dosage: UNK
     Dates: start: 20130526
  3. RIFINAH [Concomitant]
     Indication: PULMONARY TUBERCULOSIS
     Dosage: UNK
     Dates: start: 20090212
  4. TAZOCILLINE [Concomitant]
     Indication: PYREXIA
     Dosage: UNK
     Dates: start: 20090522
  5. AMIKLIN [Concomitant]
     Indication: PYREXIA
     Dosage: UNK
     Dates: start: 20090522
  6. SOLU-MEDROL [Concomitant]
     Indication: PREMEDICATION

REACTIONS (1)
  - Macroglossia [Recovered/Resolved]
